FAERS Safety Report 6054940-0 (Version None)
Quarter: 2009Q1

REPORT INFORMATION
  Report Type: 
  Country: None (occurrence: None)
  Receive Date: 20090128
  Receipt Date: 20090122
  Transmission Date: 20090719
  Serious: Yes (Life-Threatening, Hospitalization, Other)
  Sender: FDA-Public Use
  Company Number: PHHY2008JP30696

PATIENT
  Weight: 94.5 kg

DRUGS (4)
  1. DIOVAN [Suspect]
     Indication: HYPERTENSION
     Dosage: 40 MG, QD
     Route: 048
  2. DIOVAN [Suspect]
     Dosage: 80 MG, QD
     Route: 048
     Dates: start: 20070406, end: 20070529
  3. CILNIDIPINE [Concomitant]
     Dosage: 5 MG
  4. KALIMATE [Concomitant]
     Dosage: UNK
     Dates: start: 20070531, end: 20070611

REACTIONS (12)
  - ATRIOVENTRICULAR BLOCK [None]
  - BLOOD CREATININE INCREASED [None]
  - BLOOD LACTATE DEHYDROGENASE INCREASED [None]
  - BLOOD UREA INCREASED [None]
  - ELECTROCARDIOGRAM ABNORMAL [None]
  - HAEMATEMESIS [None]
  - HAEMATOCRIT DECREASED [None]
  - HAEMOGLOBIN DECREASED [None]
  - HEART RATE DECREASED [None]
  - HYPERKALAEMIA [None]
  - RENAL IMPAIRMENT [None]
  - WHITE BLOOD CELL COUNT INCREASED [None]
